FAERS Safety Report 7201768-1 (Version None)
Quarter: 2010Q4

REPORT INFORMATION
  Report Type: 
  Country: None (occurrence: None)
  Receive Date: 20101213
  Receipt Date: 20101129
  Transmission Date: 20110411
  Serious: Yes (Hospitalization)
  Sender: FDA-Public Use
  Company Number: 2010021912

PATIENT
  Sex: Male
  Weight: 18.6 kg

DRUGS (5)
  1. HUMATE-P [Suspect]
     Indication: EPISTAXIS
     Dosage: 1648 IU INTRAVENOUS
     Route: 042
     Dates: start: 20090804, end: 20100813
  2. HUMATE-P [Suspect]
     Indication: VON WILLEBRAND'S DISEASE
     Dosage: 1648 IU INTRAVENOUS
     Route: 042
     Dates: start: 20090804, end: 20100813
  3. HUMATE-P [Suspect]
  4. FERROUS SULFATE TAB [Concomitant]
  5. FOLIC ACID [Concomitant]

REACTIONS (6)
  - ABNORMAL BEHAVIOUR [None]
  - ANAEMIA [None]
  - EOSINOPHILIA [None]
  - PROTEINURIA [None]
  - SERUM SICKNESS [None]
  - SOMNOLENCE [None]
